FAERS Safety Report 4753314-X (Version None)
Quarter: 2005Q3

REPORT INFORMATION
  Report Type: 
  Country: None (occurrence: None)
  Receive Date: 20050824
  Receipt Date: 20050815
  Transmission Date: 20060218
  Serious: Yes (Other)
  Sender: FDA-Public Use
  Company Number: 2005US001133

PATIENT
  Age: 55 Year
  Sex: Female
  Weight: 143.8 kg

DRUGS (6)
  1. ADENOSCAN [Suspect]
     Indication: SCAN MYOCARDIAL PERFUSION
     Dosage: IV NOS
     Route: 042
     Dates: start: 20050726, end: 20050726
  2. GLUCOPHAGE [Concomitant]
  3. AVANDIA [Concomitant]
  4. LIBRAXIN (CHLORDIAZEPOXIDE HYDROCHLORIDE, CLIDINIUM BROMIDE) [Concomitant]
  5. BIOSOPROLOL W/HYDROCHLOROTHIAZIDE (BISOPROLOL) [Concomitant]
  6. PROZAC [Concomitant]

REACTIONS (2)
  - ASTHENIA [None]
  - LETHARGY [None]
